FAERS Safety Report 7555646-9 (Version None)
Quarter: 2011Q2

REPORT INFORMATION
  Report Type: 
  Country: None (occurrence: None)
  Receive Date: 20110617
  Receipt Date: 20080618
  Transmission Date: 20111010
  Serious: Yes (Hospitalization, Other)
  Sender: FDA-Public Use
  Company Number: PHMT2007CA00906

PATIENT
  Sex: Female

DRUGS (1)
  1. SANDOSTATIN LAR [Suspect]
     Indication: CARCINOID TUMOUR
     Dosage: 30MG EVERY 4 WEEKS
     Route: 030
     Dates: start: 20060206

REACTIONS (4)
  - NEOPLASM MALIGNANT [None]
  - HAEMOPTYSIS [None]
  - METASTASIS [None]
  - INFLUENZA LIKE ILLNESS [None]
